FAERS Safety Report 4701097-1 (Version None)
Quarter: 2005Q2

REPORT INFORMATION
  Report Type: 
  Country: None (occurrence: None)
  Receive Date: 20050624
  Receipt Date: 20050520
  Transmission Date: 20051028
  Serious: Yes (Hospitalization)
  Sender: FDA-Public Use
  Company Number: 2005-05-0010

PATIENT
  Age: 53 Year
  Sex: Female

DRUGS (6)
  1. QVAR 40 [Suspect]
     Indication: BRONCHITIS
     Dosage: 100MCG INHALATION
     Route: 055
     Dates: start: 20050308, end: 20050309
  2. CELESTENE [Concomitant]
  3. DOLIPRANE [Concomitant]
  4. CARBOCISTEINE [Concomitant]
  5. DERINOX [Concomitant]
  6. PYOSTACINE [Concomitant]

REACTIONS (4)
  - ERYTHEMA [None]
  - PITYRIASIS RUBRA PILARIS [None]
  - PRURITUS [None]
  - RASH [None]
